FAERS Safety Report 7999687-6 (Version None)
Quarter: 2011Q4

REPORT INFORMATION
  Report Type: 
  Country: None (occurrence: None)
  Receive Date: 20111221
  Receipt Date: 20111212
  Transmission Date: 20120403
  Serious: Yes (Other)
  Sender: FDA-Public Use
  Company Number: BR-ASTRAZENECA-2011SE74974

PATIENT
  Age: 46 Year
  Sex: Female
  Weight: 60 kg

DRUGS (7)
  1. SEROQUEL [Suspect]
     Route: 048
  2. SEROQUEL [Suspect]
     Indication: PANIC DISORDER
     Route: 048
     Dates: start: 20070101
  3. SEROQUEL [Suspect]
     Route: 048
     Dates: start: 20070101
  4. LIVOLON [Concomitant]
     Indication: HORMONE REPLACEMENT THERAPY
     Route: 048
     Dates: start: 20060101
  5. SEROQUEL [Suspect]
     Route: 048
  6. SEROQUEL [Suspect]
     Indication: ANXIETY
     Route: 048
     Dates: start: 20070101
  7. SEROQUEL [Suspect]
     Route: 048
     Dates: start: 20070101

REACTIONS (9)
  - THROAT IRRITATION [None]
  - DYSPNOEA [None]
  - DRY MOUTH [None]
  - PALPITATIONS [None]
  - HEADACHE [None]
  - SOMATIC DELUSION [None]
  - OFF LABEL USE [None]
  - FOAMING AT MOUTH [None]
  - SOMNOLENCE [None]
